FAERS Safety Report 8167784-0 (Version None)
Quarter: 2012Q1

REPORT INFORMATION
  Report Type: 
  Country: None (occurrence: None)
  Receive Date: 20120227
  Receipt Date: 20111102
  Transmission Date: 20120608
  Serious: Yes (Other)
  Sender: FDA-Public Use
  Company Number: FR-ROCHE-1042009

PATIENT

DRUGS (2)
  1. COPEGUS [Suspect]
     Indication: HEPATITIS C
  2. ALISPORIVIR [Suspect]
     Indication: HEPATITIS C
     Route: 048

REACTIONS (1)
  - HYPERBILIRUBINAEMIA [None]
